FAERS Safety Report 21169268 (Version 2)
Quarter: 2022Q3

REPORT INFORMATION
  Report Type: Report from Study
  Country: CA (occurrence: CA)
  Receive Date: 20220804
  Receipt Date: 20220805
  Transmission Date: 20221026
  Serious: Yes (Hospitalization, Other)
  Sender: FDA-Public Use
  Company Number: CA-ABBVIE-22K-028-4491405-00

PATIENT
  Sex: Female

DRUGS (2)
  1. RINVOQ [Suspect]
     Active Substance: UPADACITINIB
     Indication: Rheumatoid arthritis
     Route: 048
     Dates: start: 20220118, end: 20220717
  2. RINVOQ [Suspect]
     Active Substance: UPADACITINIB
     Route: 048
     Dates: start: 2022

REACTIONS (10)
  - Gallbladder disorder [Unknown]
  - Hernia [Unknown]
  - Cholelithiasis [Unknown]
  - Fluid retention [Unknown]
  - Asthenia [Unknown]
  - Breast mass [Unknown]
  - Product storage error [Unknown]
  - Pain [Unknown]
  - Back pain [Unknown]
  - Diarrhoea [Unknown]

NARRATIVE: CASE EVENT DATE: 20220101
